FAERS Safety Report 8496986-9 (Version None)
Quarter: 2012Q3

REPORT INFORMATION
  Report Type: 
  Country: None (occurrence: None)
  Receive Date: 20120709
  Receipt Date: 20120531
  Transmission Date: 20120928
  Serious: No
  Sender: FDA-Public Use
  Company Number: US-AMGEN-USASP2012034536

PATIENT
  Age: 12 Year
  Sex: Female

DRUGS (6)
  1. CENTRUM                            /00554501/ [Concomitant]
     Dosage: UNK
  2. ENBREL [Suspect]
     Indication: JUVENILE ARTHRITIS
     Dosage: 23 MG, QWK
     Dates: start: 20120301
  3. MELOXICAM [Concomitant]
     Dosage: UNK MG, UNK
  4. METHOTREXATE [Concomitant]
     Dosage: UNK MG, UNK
  5. VITAMIN D [Concomitant]
     Dosage: UNK
  6. FOLIC ACID [Concomitant]
     Dosage: UNK MG, UNK

REACTIONS (1)
  - WEIGHT INCREASED [None]
